FAERS Safety Report 7227109-1 (Version None)
Quarter: 2011Q1

REPORT INFORMATION
  Report Type: 
  Country: None (occurrence: None)
  Receive Date: 20110114
  Receipt Date: 20110110
  Transmission Date: 20110831
  Serious: Yes (Death, Other)
  Sender: FDA-Public Use
  Company Number: FR-ROCHE-752139

PATIENT
  Sex: Female

DRUGS (3)
  1. TRASTUZUMAB [Suspect]
     Route: 065
  2. EVEROLIMUS [Suspect]
     Dosage: DOSE-ESCALATION
     Route: 065
  3. PACLITAXEL [Suspect]
     Route: 065

REACTIONS (22)
  - NEUTROPENIA [None]
  - INTERSTITIAL LUNG DISEASE [None]
  - LYMPHOPENIA [None]
  - SEPSIS [None]
  - LEUKOPENIA [None]
  - ANAEMIA [None]
  - METABOLIC DISORDER [None]
  - ASPARTATE AMINOTRANSFERASE INCREASED [None]
  - GASTROINTESTINAL HAEMORRHAGE [None]
  - ARRHYTHMIA [None]
  - BLOOD CREATININE INCREASED [None]
  - THROMBOCYTOPENIA [None]
  - DIARRHOEA [None]
  - PULMONARY EMBOLISM [None]
  - ARTHRALGIA [None]
  - CONFUSIONAL STATE [None]
  - JUGULAR VEIN THROMBOSIS [None]
  - FEBRILE NEUTROPENIA [None]
  - STOMATITIS [None]
  - SUBILEUS [None]
  - ASTHENIA [None]
  - ALOPECIA [None]
